FAERS Safety Report 21915964 (Version 1)
Quarter: 2023Q1

REPORT INFORMATION
  Report Type: Spontaneous
  Country: FR (occurrence: FR)
  Receive Date: 20230126
  Receipt Date: 20230126
  Transmission Date: 20230418
  Serious: Yes (Other)
  Sender: FDA-Public Use
  Company Number: None

PATIENT
  Age: 30 Year
  Sex: Male

DRUGS (2)
  1. TRAMADOL [Suspect]
     Active Substance: TRAMADOL
     Indication: Product used for unknown indication
     Dosage: 400 MG, QD, 2X200 MG/DAY AT PEAK OF CONSUMPTION
     Route: 048
     Dates: start: 2006, end: 2021
  2. BUTYROLACTONE [Suspect]
     Active Substance: BUTYROLACTONE
     Indication: Product used for unknown indication
     Dosage: UNK
     Route: 048
     Dates: start: 2014, end: 2022

REACTIONS (2)
  - Drug dependence [Recovered/Resolved]
  - Intentional product misuse [Recovered/Resolved]

NARRATIVE: CASE EVENT DATE: 20060101
